FAERS Safety Report 15363328 (Version 1)
Quarter: 2018Q3

REPORT INFORMATION
  Report Type: Spontaneous
  Country: JP (occurrence: JP)
  Receive Date: 20180907
  Receipt Date: 20180907
  Transmission Date: 20181010
  Serious: Yes (Hospitalization, Other)
  Sender: FDA-Public Use
  Company Number: JP-SA-2018SA039679

PATIENT
  Age: 68 Year
  Sex: Male

DRUGS (4)
  1. SIMVASTATIN. [Suspect]
     Active Substance: SIMVASTATIN
     Indication: RECTAL CANCER
     Dosage: UNK UNK,QD
     Route: 041
     Dates: start: 20160203, end: 20160203
  2. ELPLAT [Suspect]
     Active Substance: OXALIPLATIN
     Indication: RECTAL CANCER
     Dosage: UNK UNK,QD
     Route: 041
     Dates: start: 20160203, end: 20160203
  3. TS?1 [Concomitant]
     Active Substance: GIMERACIL\OTERACIL\TEGAFUR
     Dosage: UNK UNK,QD
     Route: 065
     Dates: start: 20160203, end: 20160203
  4. BEVACIZUMAB. [Suspect]
     Active Substance: BEVACIZUMAB
     Indication: RECTAL CANCER
     Dosage: UNK UNK, UNK
     Dates: start: 20160203

REACTIONS (5)
  - Abdominal tenderness [Recovering/Resolving]
  - Abdominal distension [Recovering/Resolving]
  - Abdominal pain [Recovering/Resolving]
  - Arterial thrombosis [Recovering/Resolving]
  - Renal infarct [Recovering/Resolving]

NARRATIVE: CASE EVENT DATE: 20160208
